FAERS Safety Report 4791944-X (Version None)
Quarter: 2005Q4

REPORT INFORMATION
  Report Type: 
  Country: None (occurrence: None)
  Receive Date: 20051005
  Receipt Date: 20050923
  Transmission Date: 20060501
  Serious: Yes (Other)
  Sender: FDA-Public Use
  Company Number: 2005134029

PATIENT
  Age: 80 Year
  Sex: Female

DRUGS (3)
  1. XALATAN [Suspect]
     Indication: GLAUCOMA
     Dates: start: 20010928
  2. ANTIDEPRESSANTS (ANTIDEPRESSANTS) [Concomitant]
  3. LORAX (LORACARBEF) [Concomitant]

REACTIONS (1)
  - EYE INFECTION [None]
